FAERS Safety Report 25171993 (Version 2)
Quarter: 2025Q4

REPORT INFORMATION
  Report Type: Spontaneous
  Country: EU (occurrence: EU)
  Receive Date: 20250408
  Receipt Date: 20251111
  Transmission Date: 20260118
  Serious: Yes (Other)
  Sender: RANBAXY
  Company Number: EU-SUN PHARMACEUTICAL INDUSTRIES LTD-2025RR-502850

PATIENT
  Age: 84 Year
  Sex: Female

DRUGS (7)
  1. ACETAMINOPHEN [Suspect]
     Active Substance: ACETAMINOPHEN
     Indication: Pain
     Dosage: 75 MG + 650 MG 4 X 1 TABLET
     Route: 065
  2. IBUPROFEN [Suspect]
     Active Substance: IBUPROFEN
     Indication: Pain
     Dosage: 400 MILLIGRAM
     Route: 065
  3. TRAMADOL [Suspect]
     Active Substance: TRAMADOL
     Indication: Pain
     Dosage: UNK
     Route: 065
  4. KETOPROFEN [Suspect]
     Active Substance: KETOPROFEN
     Indication: Pain
     Dosage: UNK
     Route: 065
  5. METHOTREXATE [Suspect]
     Active Substance: METHOTREXATE
     Indication: Pain
     Dosage: 15 MILLIGRAM, WEEKLY
     Route: 058
  6. METHYLPREDNISOLONE [Suspect]
     Active Substance: METHYLPREDNISOLONE
     Indication: Pain
     Dosage: 4 MG ONCE A WEEK 1 TABLET IN THE MORNING
     Route: 048
  7. NIMESULIDE [Suspect]
     Active Substance: NIMESULIDE
     Indication: Pain
     Dosage: UNK
     Route: 065

REACTIONS (6)
  - Constipation [Unknown]
  - Abdominal pain upper [Unknown]
  - Therapeutic product effect incomplete [Unknown]
  - Dyspepsia [Unknown]
  - Nausea [Unknown]
  - Dizziness [Unknown]
